FAERS Safety Report 10688838 (Version 1)
Quarter: 2015Q1

REPORT INFORMATION
  Report Type: Spontaneous
  Country: DK (occurrence: DK)
  Receive Date: 20150103
  Receipt Date: 20150103
  Transmission Date: 20150720
  Serious: Yes (Other)
  Sender: FDA-Public Use
  Company Number: DK-BRISTOL-MYERS SQUIBB COMPANY-BMS-2014-002885

PATIENT
  Age: 24 Year
  Sex: Male
  Weight: 60 kg

DRUGS (6)
  1. REYATAZ [Suspect]
     Active Substance: ATAZANAVIR SULFATE
     Indication: PROPHYLAXIS AGAINST HIV INFECTION
     Dosage: DOSIS IKKE ANGIVET
     Route: 048
     Dates: start: 20140807, end: 20140921
  2. RITONAVIR. [Suspect]
     Active Substance: RITONAVIR
     Indication: PROPHYLAXIS AGAINST HIV INFECTION
     Dosage: DOSIS IKKE ANGIVET
     Route: 048
     Dates: start: 20140807, end: 20140921
  3. CAMPRAL [Concomitant]
     Active Substance: ACAMPROSATE CALCIUM
     Indication: ALCOHOL ABUSE
     Route: 065
     Dates: start: 201408
  4. KLOPOXID ^TAKEDA^ [Concomitant]
     Indication: ALCOHOL ABUSE
     Route: 065
     Dates: start: 201408
  5. QUETIAPINE [Concomitant]
     Active Substance: QUETIAPINE
     Indication: PRODUCT USED FOR UNKNOWN INDICATION
     Route: 065
  6. ANTABUSE [Concomitant]
     Active Substance: DISULFIRAM
     Indication: ALCOHOL ABUSE
     Route: 065
     Dates: start: 201408

REACTIONS (1)
  - Neutropenia [Recovered/Resolved]

NARRATIVE: CASE EVENT DATE: 20140923
